FAERS Safety Report 9460510 (Version 1)
Quarter: 2013Q3

REPORT INFORMATION
  Report Type: Spontaneous
  Country: DE (occurrence: DE)
  Receive Date: 20130815
  Receipt Date: 20130815
  Transmission Date: 20140515
  Serious: Yes (Life-Threatening)
  Sender: FDA-Public Use
  Company Number: DE-009507513-1308DEU004415

PATIENT
  Age: 30 Year
  Sex: Female
  Weight: 62 kg

DRUGS (3)
  1. PREDALON [Suspect]
     Indication: INFERTILITY FEMALE
     Dosage: UNK
     Route: 048
     Dates: start: 201203, end: 201210
  2. CLOMIPHENE CITRATE [Suspect]
     Indication: INFERTILITY FEMALE
     Dosage: UNK
     Route: 048
     Dates: start: 201203, end: 201210
  3. ESTRADIOL [Suspect]
     Indication: INFERTILITY FEMALE
     Dosage: UNK
     Route: 048
     Dates: start: 201203, end: 201210

REACTIONS (2)
  - Pseudolymphoma [Not Recovered/Not Resolved]
  - Lymphocytosis [Not Recovered/Not Resolved]
